FAERS Safety Report 24702607 (Version 1)
Quarter: 2024Q4

REPORT INFORMATION
  Report Type: Spontaneous
  Country: US (occurrence: US)
  Receive Date: 20241205
  Receipt Date: 20241205
  Transmission Date: 20250115
  Serious: No
  Sender: LEXICON PHARMACEUTICALS
  Company Number: US-LEX-000550

PATIENT
  Age: 71 Year
  Sex: Male

DRUGS (8)
  1. INPEFA [Suspect]
     Active Substance: SOTAGLIFLOZIN
     Indication: Product used for unknown indication
     Route: 048
     Dates: start: 20240817, end: 202411
  2. ATORVASTATIN [Concomitant]
     Active Substance: ATORVASTATIN
  3. NITROGLYCERIN [Concomitant]
     Active Substance: NITROGLYCERIN
  4. RANOLAZINE [Concomitant]
     Active Substance: RANOLAZINE
  5. ALBUTEROL SULFATE [Concomitant]
     Active Substance: ALBUTEROL SULFATE
  6. AMLODIPINE [Concomitant]
     Active Substance: AMLODIPINE BESYLATE
  7. CANDESARTAN [Concomitant]
     Active Substance: CANDESARTAN
  8. TAMSULOSIN [Concomitant]
     Active Substance: TAMSULOSIN

REACTIONS (1)
  - Dizziness [Recovered/Resolved]

NARRATIVE: CASE EVENT DATE: 20241106
